FAERS Safety Report 15137959 (Version 1)
Quarter: 2018Q3

REPORT INFORMATION
  Report Type: Spontaneous
  Country: FR (occurrence: FR)
  Receive Date: 20180712
  Receipt Date: 20180712
  Transmission Date: 20181010
  Serious: Yes (Other)
  Sender: FDA-Public Use
  Company Number: FR-BRISTOL-MYERS SQUIBB COMPANY-BMS-2018-063617

PATIENT
  Age: 58 Year
  Sex: Female
  Weight: 53 kg

DRUGS (2)
  1. NIVOLUMAB [Suspect]
     Active Substance: NIVOLUMAB
     Indication: PRODUCT USED FOR UNKNOWN INDICATION
     Dosage: 159 MG, UNK
     Route: 042
     Dates: start: 20171228, end: 20180403
  2. IPILIMUMAB [Suspect]
     Active Substance: IPILIMUMAB
     Indication: PRODUCT USED FOR UNKNOWN INDICATION
     Dosage: 53 MG, UNK
     Route: 065

REACTIONS (1)
  - Alveolitis [Recovered/Resolved]

NARRATIVE: CASE EVENT DATE: 20180411
